FAERS Safety Report 8608195-0 (Version None)
Quarter: 2012Q3

REPORT INFORMATION
  Report Type: 
  Country: None (occurrence: None)
  Receive Date: 20120821
  Receipt Date: 20120810
  Transmission Date: 20120928
  Serious: Yes (Hospitalization, Other)
  Sender: FDA-Public Use
  Company Number: US-JNJFOC-20120102457

PATIENT
  Sex: Male

DRUGS (18)
  1. CALCIUM [Concomitant]
     Indication: MEDICAL DIET
     Route: 048
     Dates: start: 20110311
  2. HYDROCODONE BITARTRATE [Concomitant]
     Indication: PAIN
     Dosage: 7.5/500 MG
     Route: 048
     Dates: start: 20111024
  3. DASATINIB [Suspect]
     Indication: PROSTATE CANCER
     Route: 048
     Dates: start: 20111025, end: 20111220
  4. ADVIL [Concomitant]
     Indication: GOUT
     Route: 048
     Dates: start: 20110825
  5. FLEXERIL [Concomitant]
     Indication: PAIN
     Route: 065
     Dates: start: 20111025
  6. MULTI-VITAMINS [Concomitant]
     Indication: MEDICAL DIET
     Route: 048
     Dates: start: 20110311
  7. PREDNISONE [Suspect]
     Indication: PROSTATE CANCER
     Route: 048
     Dates: start: 20110830
  8. LYRICA [Concomitant]
     Indication: PAIN
     Route: 065
     Dates: start: 20111025
  9. LUPRON [Concomitant]
     Indication: PROSTATE CANCER
     Route: 030
     Dates: start: 20100820
  10. ABIRATERONE ACETATE [Suspect]
     Indication: PROSTATE CANCER
     Route: 048
     Dates: start: 20110830
  11. METAFIBER [Concomitant]
     Indication: CONSTIPATION
     Route: 048
     Dates: start: 20110820
  12. CARAFATE [Concomitant]
     Indication: DYSPEPSIA
     Route: 048
     Dates: start: 20111022
  13. VITAMIN D [Concomitant]
     Indication: MEDICAL DIET
     Route: 048
     Dates: start: 20110311
  14. ALLOPURINOL [Concomitant]
     Indication: GOUT
     Route: 048
  15. VITAMIN B-12 [Concomitant]
     Indication: MEDICAL DIET
     Route: 060
     Dates: start: 20110311
  16. ABIRATERONE ACETATE [Suspect]
     Route: 048
  17. SUNITINIB MALATE [Suspect]
     Indication: PROSTATE CANCER
     Route: 065
  18. IRON [Concomitant]
     Indication: MEDICAL DIET
     Route: 048
     Dates: start: 20110311

REACTIONS (1)
  - PNEUMONITIS [None]
